FAERS Safety Report 20013560 (Version 7)
Quarter: 2025Q2

REPORT INFORMATION
  Report Type: Spontaneous
  Country: DK (occurrence: DK)
  Receive Date: 20211029
  Receipt Date: 20250529
  Transmission Date: 20250716
  Serious: Yes (Death, Life-Threatening, Hospitalization, Other)
  Sender: MYLAN
  Company Number: DK-ACCORD-232214

PATIENT
  Age: 68 Year
  Sex: Female
  Weight: 75.1 kg

DRUGS (260)
  1. GEMCITABINE [Suspect]
     Active Substance: GEMCITABINE
     Indication: Diffuse large B-cell lymphoma stage IV
     Route: 042
     Dates: start: 20210202, end: 20210202
  2. GEMCITABINE [Suspect]
     Active Substance: GEMCITABINE
     Route: 042
     Dates: start: 20210202, end: 20210202
  3. GEMCITABINE [Suspect]
     Active Substance: GEMCITABINE
     Dates: start: 20210202, end: 20210202
  4. GEMCITABINE [Suspect]
     Active Substance: GEMCITABINE
     Dates: start: 20210202, end: 20210202
  5. GEMCITABINE [Suspect]
     Active Substance: GEMCITABINE
     Dates: start: 20210429, end: 20210429
  6. GEMCITABINE [Suspect]
     Active Substance: GEMCITABINE
     Dates: start: 20210429, end: 20210429
  7. GEMCITABINE [Suspect]
     Active Substance: GEMCITABINE
     Route: 042
     Dates: start: 20210429, end: 20210429
  8. GEMCITABINE [Suspect]
     Active Substance: GEMCITABINE
     Route: 042
     Dates: start: 20210429, end: 20210429
  9. GEMCITABINE [Suspect]
     Active Substance: GEMCITABINE
     Dates: start: 20210223, end: 20210223
  10. GEMCITABINE [Suspect]
     Active Substance: GEMCITABINE
     Dates: start: 20210223, end: 20210223
  11. GEMCITABINE [Suspect]
     Active Substance: GEMCITABINE
     Route: 042
     Dates: start: 20210223, end: 20210223
  12. GEMCITABINE [Suspect]
     Active Substance: GEMCITABINE
     Route: 042
     Dates: start: 20210223, end: 20210223
  13. GEMCITABINE [Suspect]
     Active Substance: GEMCITABINE
     Route: 042
     Dates: start: 20210413, end: 20210413
  14. GEMCITABINE [Suspect]
     Active Substance: GEMCITABINE
     Dates: start: 20210413, end: 20210413
  15. GEMCITABINE [Suspect]
     Active Substance: GEMCITABINE
     Dates: start: 20210413, end: 20210413
  16. GEMCITABINE [Suspect]
     Active Substance: GEMCITABINE
     Route: 042
     Dates: start: 20210413, end: 20210413
  17. GEMCITABINE [Suspect]
     Active Substance: GEMCITABINE
     Route: 042
     Dates: start: 20210531, end: 20210531
  18. GEMCITABINE [Suspect]
     Active Substance: GEMCITABINE
     Route: 042
     Dates: start: 20210531, end: 20210531
  19. GEMCITABINE [Suspect]
     Active Substance: GEMCITABINE
     Dates: start: 20210531, end: 20210531
  20. GEMCITABINE [Suspect]
     Active Substance: GEMCITABINE
     Dates: start: 20210531, end: 20210531
  21. GEMCITABINE [Suspect]
     Active Substance: GEMCITABINE
     Dates: start: 20210312, end: 20210312
  22. GEMCITABINE [Suspect]
     Active Substance: GEMCITABINE
     Dates: start: 20210312, end: 20210312
  23. GEMCITABINE [Suspect]
     Active Substance: GEMCITABINE
     Route: 042
     Dates: start: 20210312, end: 20210312
  24. GEMCITABINE [Suspect]
     Active Substance: GEMCITABINE
     Route: 042
     Dates: start: 20210312, end: 20210312
  25. GEMCITABINE [Suspect]
     Active Substance: GEMCITABINE
     Route: 042
     Dates: start: 20210326, end: 20210326
  26. GEMCITABINE [Suspect]
     Active Substance: GEMCITABINE
     Dates: start: 20210326, end: 20210326
  27. GEMCITABINE [Suspect]
     Active Substance: GEMCITABINE
     Dates: start: 20210326, end: 20210326
  28. GEMCITABINE [Suspect]
     Active Substance: GEMCITABINE
     Route: 042
     Dates: start: 20210326, end: 20210326
  29. GEMCITABINE [Suspect]
     Active Substance: GEMCITABINE
     Route: 042
     Dates: start: 20210202, end: 20210531
  30. GEMCITABINE [Suspect]
     Active Substance: GEMCITABINE
     Dates: start: 20210202, end: 20210531
  31. GEMCITABINE [Suspect]
     Active Substance: GEMCITABINE
     Dates: start: 20210202, end: 20210531
  32. GEMCITABINE [Suspect]
     Active Substance: GEMCITABINE
     Route: 042
     Dates: start: 20210202, end: 20210531
  33. GEMCITABINE [Suspect]
     Active Substance: GEMCITABINE
     Dates: start: 20210517, end: 20210517
  34. GEMCITABINE [Suspect]
     Active Substance: GEMCITABINE
     Dates: start: 20210517, end: 20210517
  35. GEMCITABINE [Suspect]
     Active Substance: GEMCITABINE
     Route: 042
     Dates: start: 20210517, end: 20210517
  36. GEMCITABINE [Suspect]
     Active Substance: GEMCITABINE
     Route: 042
     Dates: start: 20210517, end: 20210517
  37. OXALIPLATIN [Suspect]
     Active Substance: OXALIPLATIN
     Indication: Diffuse large B-cell lymphoma stage IV
     Route: 042
     Dates: start: 20210429, end: 20210429
  38. OXALIPLATIN [Suspect]
     Active Substance: OXALIPLATIN
     Dates: start: 20210429, end: 20210429
  39. OXALIPLATIN [Suspect]
     Active Substance: OXALIPLATIN
     Dates: start: 20210429, end: 20210429
  40. OXALIPLATIN [Suspect]
     Active Substance: OXALIPLATIN
     Route: 042
     Dates: start: 20210429, end: 20210429
  41. OXALIPLATIN [Suspect]
     Active Substance: OXALIPLATIN
     Dates: start: 20210531, end: 20210531
  42. OXALIPLATIN [Suspect]
     Active Substance: OXALIPLATIN
     Dates: start: 20210531, end: 20210531
  43. OXALIPLATIN [Suspect]
     Active Substance: OXALIPLATIN
     Route: 042
     Dates: start: 20210531, end: 20210531
  44. OXALIPLATIN [Suspect]
     Active Substance: OXALIPLATIN
     Route: 042
     Dates: start: 20210531, end: 20210531
  45. OXALIPLATIN [Suspect]
     Active Substance: OXALIPLATIN
     Route: 042
     Dates: start: 20210312, end: 20210312
  46. OXALIPLATIN [Suspect]
     Active Substance: OXALIPLATIN
     Dates: start: 20210312, end: 20210312
  47. OXALIPLATIN [Suspect]
     Active Substance: OXALIPLATIN
     Dates: start: 20210312, end: 20210312
  48. OXALIPLATIN [Suspect]
     Active Substance: OXALIPLATIN
     Route: 042
     Dates: start: 20210312, end: 20210312
  49. OXALIPLATIN [Suspect]
     Active Substance: OXALIPLATIN
     Dates: start: 20210326, end: 20210326
  50. OXALIPLATIN [Suspect]
     Active Substance: OXALIPLATIN
     Dates: start: 20210326, end: 20210326
  51. OXALIPLATIN [Suspect]
     Active Substance: OXALIPLATIN
     Route: 042
     Dates: start: 20210326, end: 20210326
  52. OXALIPLATIN [Suspect]
     Active Substance: OXALIPLATIN
     Route: 042
     Dates: start: 20210326, end: 20210326
  53. OXALIPLATIN [Suspect]
     Active Substance: OXALIPLATIN
     Dates: start: 20210202, end: 20210202
  54. OXALIPLATIN [Suspect]
     Active Substance: OXALIPLATIN
     Dates: start: 20210202, end: 20210202
  55. OXALIPLATIN [Suspect]
     Active Substance: OXALIPLATIN
     Route: 042
     Dates: start: 20210202, end: 20210202
  56. OXALIPLATIN [Suspect]
     Active Substance: OXALIPLATIN
     Route: 042
     Dates: start: 20210202, end: 20210202
  57. OXALIPLATIN [Suspect]
     Active Substance: OXALIPLATIN
     Dates: start: 20210223, end: 20210223
  58. OXALIPLATIN [Suspect]
     Active Substance: OXALIPLATIN
     Route: 042
     Dates: start: 20210223, end: 20210223
  59. OXALIPLATIN [Suspect]
     Active Substance: OXALIPLATIN
     Dates: start: 20210223, end: 20210223
  60. OXALIPLATIN [Suspect]
     Active Substance: OXALIPLATIN
     Route: 042
     Dates: start: 20210223, end: 20210223
  61. OXALIPLATIN [Suspect]
     Active Substance: OXALIPLATIN
     Route: 042
     Dates: start: 20210517, end: 20210517
  62. OXALIPLATIN [Suspect]
     Active Substance: OXALIPLATIN
     Route: 042
     Dates: start: 20210517, end: 20210517
  63. OXALIPLATIN [Suspect]
     Active Substance: OXALIPLATIN
     Dates: start: 20210517, end: 20210517
  64. OXALIPLATIN [Suspect]
     Active Substance: OXALIPLATIN
     Dates: start: 20210517, end: 20210517
  65. OXALIPLATIN [Suspect]
     Active Substance: OXALIPLATIN
     Route: 042
     Dates: start: 20210413, end: 20210413
  66. OXALIPLATIN [Suspect]
     Active Substance: OXALIPLATIN
     Dates: start: 20210413, end: 20210413
  67. OXALIPLATIN [Suspect]
     Active Substance: OXALIPLATIN
     Dates: start: 20210413, end: 20210413
  68. OXALIPLATIN [Suspect]
     Active Substance: OXALIPLATIN
     Route: 042
     Dates: start: 20210413, end: 20210413
  69. OXALIPLATIN [Suspect]
     Active Substance: OXALIPLATIN
     Dates: start: 20210202, end: 20210202
  70. OXALIPLATIN [Suspect]
     Active Substance: OXALIPLATIN
     Route: 042
     Dates: start: 20210202, end: 20210202
  71. OXALIPLATIN [Suspect]
     Active Substance: OXALIPLATIN
     Route: 042
     Dates: start: 20210202, end: 20210202
  72. OXALIPLATIN [Suspect]
     Active Substance: OXALIPLATIN
     Dates: start: 20210202, end: 20210202
  73. OXALIPLATIN [Suspect]
     Active Substance: OXALIPLATIN
     Dates: start: 20210202, end: 20210531
  74. OXALIPLATIN [Suspect]
     Active Substance: OXALIPLATIN
     Dates: start: 20210202, end: 20210531
  75. OXALIPLATIN [Suspect]
     Active Substance: OXALIPLATIN
     Route: 042
     Dates: start: 20210202, end: 20210531
  76. OXALIPLATIN [Suspect]
     Active Substance: OXALIPLATIN
     Route: 042
     Dates: start: 20210202, end: 20210531
  77. EPCORITAMAB [Suspect]
     Active Substance: EPCORITAMAB
     Indication: Diffuse large B-cell lymphoma stage IV
     Route: 058
     Dates: start: 20210517, end: 20210531
  78. EPCORITAMAB [Suspect]
     Active Substance: EPCORITAMAB
     Dates: start: 20210517, end: 20210531
  79. EPCORITAMAB [Suspect]
     Active Substance: EPCORITAMAB
     Dates: start: 20210517, end: 20210531
  80. EPCORITAMAB [Suspect]
     Active Substance: EPCORITAMAB
     Route: 058
     Dates: start: 20210517, end: 20210531
  81. EPCORITAMAB [Suspect]
     Active Substance: EPCORITAMAB
     Dosage: UNK, FULL DOSE: 48 MG, WEEKLY
     Route: 058
     Dates: start: 20210223, end: 20210507
  82. EPCORITAMAB [Suspect]
     Active Substance: EPCORITAMAB
     Dosage: UNK, FULL DOSE: 48 MG, WEEKLY
     Dates: start: 20210223, end: 20210507
  83. EPCORITAMAB [Suspect]
     Active Substance: EPCORITAMAB
     Dosage: UNK, FULL DOSE: 48 MG, WEEKLY
     Dates: start: 20210223, end: 20210507
  84. EPCORITAMAB [Suspect]
     Active Substance: EPCORITAMAB
     Dosage: UNK, FULL DOSE: 48 MG, WEEKLY
     Route: 058
     Dates: start: 20210223, end: 20210507
  85. EPCORITAMAB [Suspect]
     Active Substance: EPCORITAMAB
     Dates: start: 20210202, end: 20210202
  86. EPCORITAMAB [Suspect]
     Active Substance: EPCORITAMAB
     Dates: start: 20210202, end: 20210202
  87. EPCORITAMAB [Suspect]
     Active Substance: EPCORITAMAB
     Route: 058
     Dates: start: 20210202, end: 20210202
  88. EPCORITAMAB [Suspect]
     Active Substance: EPCORITAMAB
     Route: 058
     Dates: start: 20210202, end: 20210202
  89. EPCORITAMAB [Suspect]
     Active Substance: EPCORITAMAB
     Dates: start: 20210216, end: 20210216
  90. EPCORITAMAB [Suspect]
     Active Substance: EPCORITAMAB
     Dates: start: 20210216, end: 20210216
  91. EPCORITAMAB [Suspect]
     Active Substance: EPCORITAMAB
     Route: 058
     Dates: start: 20210216, end: 20210216
  92. EPCORITAMAB [Suspect]
     Active Substance: EPCORITAMAB
     Route: 058
     Dates: start: 20210216, end: 20210216
  93. PANTOPRAZOLE [Concomitant]
     Active Substance: PANTOPRAZOLE
     Dates: start: 20200511, end: 20210704
  94. PANTOPRAZOLE [Concomitant]
     Active Substance: PANTOPRAZOLE
     Route: 065
     Dates: start: 20200511, end: 20210704
  95. PANTOPRAZOLE [Concomitant]
     Active Substance: PANTOPRAZOLE
     Route: 065
     Dates: start: 20200511, end: 20210704
  96. PANTOPRAZOLE [Concomitant]
     Active Substance: PANTOPRAZOLE
     Dates: start: 20200511, end: 20210704
  97. ONDANSETRON [Concomitant]
     Active Substance: ONDANSETRON
     Route: 065
  98. ONDANSETRON [Concomitant]
     Active Substance: ONDANSETRON
  99. ONDANSETRON [Concomitant]
     Active Substance: ONDANSETRON
  100. ONDANSETRON [Concomitant]
     Active Substance: ONDANSETRON
     Route: 065
  101. ONDANSETRON [Concomitant]
     Active Substance: ONDANSETRON
     Route: 065
     Dates: start: 20210517, end: 20210517
  102. ONDANSETRON [Concomitant]
     Active Substance: ONDANSETRON
     Dates: start: 20210517, end: 20210517
  103. ONDANSETRON [Concomitant]
     Active Substance: ONDANSETRON
     Dates: start: 20210517, end: 20210517
  104. ONDANSETRON [Concomitant]
     Active Substance: ONDANSETRON
     Route: 065
     Dates: start: 20210517, end: 20210517
  105. ONDANSETRON [Concomitant]
     Active Substance: ONDANSETRON
     Route: 065
     Dates: start: 20210517, end: 20210517
  106. ONDANSETRON [Concomitant]
     Active Substance: ONDANSETRON
     Route: 065
     Dates: start: 20210517, end: 20210517
  107. ONDANSETRON [Concomitant]
     Active Substance: ONDANSETRON
     Dates: start: 20210517, end: 20210517
  108. ONDANSETRON [Concomitant]
     Active Substance: ONDANSETRON
     Dates: start: 20210517, end: 20210517
  109. PREDNISOLONE [Concomitant]
     Active Substance: PREDNISOLONE
     Dates: start: 20210514, end: 20210531
  110. PREDNISOLONE [Concomitant]
     Active Substance: PREDNISOLONE
     Route: 065
     Dates: start: 20210514, end: 20210531
  111. PREDNISOLONE [Concomitant]
     Active Substance: PREDNISOLONE
     Route: 065
     Dates: start: 20210514, end: 20210531
  112. PREDNISOLONE [Concomitant]
     Active Substance: PREDNISOLONE
     Dates: start: 20210514, end: 20210531
  113. ACYCLOVIR [Concomitant]
     Active Substance: ACYCLOVIR
     Dates: start: 20210215, end: 20210624
  114. ACYCLOVIR [Concomitant]
     Active Substance: ACYCLOVIR
     Route: 065
     Dates: start: 20210215, end: 20210624
  115. ACYCLOVIR [Concomitant]
     Active Substance: ACYCLOVIR
     Route: 065
     Dates: start: 20210215, end: 20210624
  116. ACYCLOVIR [Concomitant]
     Active Substance: ACYCLOVIR
     Dates: start: 20210215, end: 20210624
  117. ALLOPURINOL [Concomitant]
     Active Substance: ALLOPURINOL
     Dates: start: 20210517, end: 20210517
  118. ALLOPURINOL [Concomitant]
     Active Substance: ALLOPURINOL
     Route: 065
     Dates: start: 20210517, end: 20210517
  119. ALLOPURINOL [Concomitant]
     Active Substance: ALLOPURINOL
     Route: 065
     Dates: start: 20210517, end: 20210517
  120. ALLOPURINOL [Concomitant]
     Active Substance: ALLOPURINOL
     Dates: start: 20210517, end: 20210517
  121. BISACODYL [Concomitant]
     Active Substance: BISACODYL
  122. BISACODYL [Concomitant]
     Active Substance: BISACODYL
     Route: 065
  123. BISACODYL [Concomitant]
     Active Substance: BISACODYL
     Route: 065
  124. BISACODYL [Concomitant]
     Active Substance: BISACODYL
  125. CETIRIZINE HYDROCHLORIDE [Concomitant]
     Active Substance: CETIRIZINE HYDROCHLORIDE
     Dates: start: 20210514, end: 20210531
  126. CETIRIZINE HYDROCHLORIDE [Concomitant]
     Active Substance: CETIRIZINE HYDROCHLORIDE
     Route: 065
     Dates: start: 20210514, end: 20210531
  127. CETIRIZINE HYDROCHLORIDE [Concomitant]
     Active Substance: CETIRIZINE HYDROCHLORIDE
     Route: 065
     Dates: start: 20210514, end: 20210531
  128. CETIRIZINE HYDROCHLORIDE [Concomitant]
     Active Substance: CETIRIZINE HYDROCHLORIDE
     Dates: start: 20210514, end: 20210531
  129. ZOPICLONE [Concomitant]
     Active Substance: ZOPICLONE
     Dates: start: 20200318, end: 20210704
  130. ZOPICLONE [Concomitant]
     Active Substance: ZOPICLONE
     Route: 065
     Dates: start: 20200318, end: 20210704
  131. ZOPICLONE [Concomitant]
     Active Substance: ZOPICLONE
     Route: 065
     Dates: start: 20200318, end: 20210704
  132. ZOPICLONE [Concomitant]
     Active Substance: ZOPICLONE
     Dates: start: 20200318, end: 20210704
  133. POTASSIUM CHLORIDE [Concomitant]
     Active Substance: POTASSIUM CHLORIDE
     Route: 065
  134. POTASSIUM CHLORIDE [Concomitant]
     Active Substance: POTASSIUM CHLORIDE
  135. POTASSIUM CHLORIDE [Concomitant]
     Active Substance: POTASSIUM CHLORIDE
  136. POTASSIUM CHLORIDE [Concomitant]
     Active Substance: POTASSIUM CHLORIDE
     Route: 065
  137. POTASSIUM CHLORIDE [Concomitant]
     Active Substance: POTASSIUM CHLORIDE
     Route: 065
     Dates: start: 20210608, end: 20210613
  138. POTASSIUM CHLORIDE [Concomitant]
     Active Substance: POTASSIUM CHLORIDE
     Dates: start: 20210608, end: 20210613
  139. POTASSIUM CHLORIDE [Concomitant]
     Active Substance: POTASSIUM CHLORIDE
     Dates: start: 20210608, end: 20210613
  140. POTASSIUM CHLORIDE [Concomitant]
     Active Substance: POTASSIUM CHLORIDE
     Route: 065
     Dates: start: 20210608, end: 20210613
  141. CHOLECALCIFEROL [Concomitant]
     Active Substance: CHOLECALCIFEROL
     Dates: start: 20200408, end: 20210704
  142. CHOLECALCIFEROL [Concomitant]
     Active Substance: CHOLECALCIFEROL
     Route: 065
     Dates: start: 20200408, end: 20210704
  143. CHOLECALCIFEROL [Concomitant]
     Active Substance: CHOLECALCIFEROL
     Route: 065
     Dates: start: 20200408, end: 20210704
  144. CHOLECALCIFEROL [Concomitant]
     Active Substance: CHOLECALCIFEROL
     Dates: start: 20200408, end: 20210704
  145. CALCIUM CARBONATE [Concomitant]
     Active Substance: CALCIUM CARBONATE
     Dates: start: 20200402, end: 20210702
  146. CALCIUM CARBONATE [Concomitant]
     Active Substance: CALCIUM CARBONATE
     Route: 065
     Dates: start: 20200402, end: 20210702
  147. CALCIUM CARBONATE [Concomitant]
     Active Substance: CALCIUM CARBONATE
     Route: 065
     Dates: start: 20200402, end: 20210702
  148. CALCIUM CARBONATE [Concomitant]
     Active Substance: CALCIUM CARBONATE
     Dates: start: 20200402, end: 20210702
  149. ACETAMINOPHEN [Concomitant]
     Active Substance: ACETAMINOPHEN
     Route: 065
     Dates: start: 20210514, end: 20210531
  150. ACETAMINOPHEN [Concomitant]
     Active Substance: ACETAMINOPHEN
     Dates: start: 20210514, end: 20210531
  151. ACETAMINOPHEN [Concomitant]
     Active Substance: ACETAMINOPHEN
     Dates: start: 20210514, end: 20210531
  152. ACETAMINOPHEN [Concomitant]
     Active Substance: ACETAMINOPHEN
     Route: 065
     Dates: start: 20210514, end: 20210531
  153. ACETAMINOPHEN [Concomitant]
     Active Substance: ACETAMINOPHEN
     Route: 065
     Dates: start: 20210514, end: 20210624
  154. ACETAMINOPHEN [Concomitant]
     Active Substance: ACETAMINOPHEN
     Dates: start: 20210514, end: 20210624
  155. ACETAMINOPHEN [Concomitant]
     Active Substance: ACETAMINOPHEN
     Dates: start: 20210514, end: 20210624
  156. ACETAMINOPHEN [Concomitant]
     Active Substance: ACETAMINOPHEN
     Route: 065
     Dates: start: 20210514, end: 20210624
  157. DALTEPARIN [Concomitant]
     Active Substance: DALTEPARIN
     Dates: start: 20210325, end: 20210525
  158. DALTEPARIN [Concomitant]
     Active Substance: DALTEPARIN
     Route: 065
     Dates: start: 20210325, end: 20210525
  159. DALTEPARIN [Concomitant]
     Active Substance: DALTEPARIN
     Route: 065
     Dates: start: 20210325, end: 20210525
  160. DALTEPARIN [Concomitant]
     Active Substance: DALTEPARIN
     Dates: start: 20210325, end: 20210525
  161. PEGFILGRASTIM [Concomitant]
     Active Substance: PEGFILGRASTIM
     Dates: start: 20210520, end: 20210520
  162. PEGFILGRASTIM [Concomitant]
     Active Substance: PEGFILGRASTIM
     Route: 065
     Dates: start: 20210520, end: 20210520
  163. PEGFILGRASTIM [Concomitant]
     Active Substance: PEGFILGRASTIM
     Route: 065
     Dates: start: 20210520, end: 20210520
  164. PEGFILGRASTIM [Concomitant]
     Active Substance: PEGFILGRASTIM
     Dates: start: 20210520, end: 20210520
  165. FUROSEMIDE [Concomitant]
     Active Substance: FUROSEMIDE
     Dates: start: 20210613, end: 20210704
  166. FUROSEMIDE [Concomitant]
     Active Substance: FUROSEMIDE
     Dates: start: 20210613, end: 20210704
  167. FUROSEMIDE [Concomitant]
     Active Substance: FUROSEMIDE
     Route: 065
     Dates: start: 20210613, end: 20210704
  168. FUROSEMIDE [Concomitant]
     Active Substance: FUROSEMIDE
     Route: 065
     Dates: start: 20210613, end: 20210704
  169. FUROSEMIDE [Concomitant]
     Active Substance: FUROSEMIDE
     Dates: start: 20210607, end: 20210625
  170. FUROSEMIDE [Concomitant]
     Active Substance: FUROSEMIDE
     Dates: start: 20210607, end: 20210625
  171. FUROSEMIDE [Concomitant]
     Active Substance: FUROSEMIDE
     Route: 065
     Dates: start: 20210607, end: 20210625
  172. FUROSEMIDE [Concomitant]
     Active Substance: FUROSEMIDE
     Route: 065
     Dates: start: 20210607, end: 20210625
  173. FUROSEMIDE [Concomitant]
     Active Substance: FUROSEMIDE
  174. FUROSEMIDE [Concomitant]
     Active Substance: FUROSEMIDE
     Route: 065
  175. FUROSEMIDE [Concomitant]
     Active Substance: FUROSEMIDE
  176. FUROSEMIDE [Concomitant]
     Active Substance: FUROSEMIDE
     Route: 065
  177. DIGOXIN [Concomitant]
     Active Substance: DIGOXIN
     Dates: start: 20210705, end: 20210706
  178. DIGOXIN [Concomitant]
     Active Substance: DIGOXIN
     Dates: start: 20210705, end: 20210706
  179. DIGOXIN [Concomitant]
     Active Substance: DIGOXIN
     Route: 065
     Dates: start: 20210705, end: 20210706
  180. DIGOXIN [Concomitant]
     Active Substance: DIGOXIN
     Route: 065
     Dates: start: 20210705, end: 20210706
  181. DIGOXIN [Concomitant]
     Active Substance: DIGOXIN
     Dates: start: 20210705, end: 20210705
  182. DIGOXIN [Concomitant]
     Active Substance: DIGOXIN
     Dates: start: 20210705, end: 20210705
  183. DIGOXIN [Concomitant]
     Active Substance: DIGOXIN
     Route: 065
     Dates: start: 20210705, end: 20210705
  184. DIGOXIN [Concomitant]
     Active Substance: DIGOXIN
     Route: 065
     Dates: start: 20210705, end: 20210705
  185. TOCILIZUMAB [Concomitant]
     Active Substance: TOCILIZUMAB
     Dates: start: 20210707, end: 20210707
  186. TOCILIZUMAB [Concomitant]
     Active Substance: TOCILIZUMAB
     Route: 065
     Dates: start: 20210707, end: 20210707
  187. TOCILIZUMAB [Concomitant]
     Active Substance: TOCILIZUMAB
     Route: 065
     Dates: start: 20210707, end: 20210707
  188. TOCILIZUMAB [Concomitant]
     Active Substance: TOCILIZUMAB
     Dates: start: 20210707, end: 20210707
  189. AMIODARONE [Concomitant]
     Active Substance: AMIODARONE
     Dates: start: 20210706, end: 20210707
  190. AMIODARONE [Concomitant]
     Active Substance: AMIODARONE
     Route: 065
     Dates: start: 20210706, end: 20210707
  191. AMIODARONE [Concomitant]
     Active Substance: AMIODARONE
     Route: 065
     Dates: start: 20210706, end: 20210707
  192. AMIODARONE [Concomitant]
     Active Substance: AMIODARONE
     Dates: start: 20210706, end: 20210707
  193. FILGRASTIM [Concomitant]
     Active Substance: FILGRASTIM
     Dates: start: 20210612, end: 20210711
  194. FILGRASTIM [Concomitant]
     Active Substance: FILGRASTIM
     Route: 065
     Dates: start: 20210612, end: 20210711
  195. FILGRASTIM [Concomitant]
     Active Substance: FILGRASTIM
     Route: 065
     Dates: start: 20210612, end: 20210711
  196. FILGRASTIM [Concomitant]
     Active Substance: FILGRASTIM
     Dates: start: 20210612, end: 20210711
  197. ATENOLOL [Concomitant]
     Active Substance: ATENOLOL
     Dates: start: 20210616, end: 20210704
  198. ATENOLOL [Concomitant]
     Active Substance: ATENOLOL
     Dates: start: 20210616, end: 20210704
  199. ATENOLOL [Concomitant]
     Active Substance: ATENOLOL
     Route: 065
     Dates: start: 20210616, end: 20210704
  200. ATENOLOL [Concomitant]
     Active Substance: ATENOLOL
     Route: 065
     Dates: start: 20210616, end: 20210704
  201. ATENOLOL [Concomitant]
     Active Substance: ATENOLOL
     Dates: start: 20210616, end: 20210629
  202. ATENOLOL [Concomitant]
     Active Substance: ATENOLOL
     Dates: start: 20210616, end: 20210629
  203. ATENOLOL [Concomitant]
     Active Substance: ATENOLOL
     Route: 065
     Dates: start: 20210616, end: 20210629
  204. ATENOLOL [Concomitant]
     Active Substance: ATENOLOL
     Route: 065
     Dates: start: 20210616, end: 20210629
  205. SOLU-MEDROL [Concomitant]
     Active Substance: METHYLPREDNISOLONE SODIUM SUCCINATE
  206. SOLU-MEDROL [Concomitant]
     Active Substance: METHYLPREDNISOLONE SODIUM SUCCINATE
     Route: 065
  207. SOLU-MEDROL [Concomitant]
     Active Substance: METHYLPREDNISOLONE SODIUM SUCCINATE
     Route: 065
  208. SOLU-MEDROL [Concomitant]
     Active Substance: METHYLPREDNISOLONE SODIUM SUCCINATE
  209. CALCIUM POLYSTYRENE SULFONATE [Concomitant]
     Active Substance: CALCIUM POLYSTYRENE SULFONATE
     Dates: start: 20210701, end: 20210704
  210. CALCIUM POLYSTYRENE SULFONATE [Concomitant]
     Active Substance: CALCIUM POLYSTYRENE SULFONATE
     Route: 065
     Dates: start: 20210701, end: 20210704
  211. CALCIUM POLYSTYRENE SULFONATE [Concomitant]
     Active Substance: CALCIUM POLYSTYRENE SULFONATE
     Route: 065
     Dates: start: 20210701, end: 20210704
  212. CALCIUM POLYSTYRENE SULFONATE [Concomitant]
     Active Substance: CALCIUM POLYSTYRENE SULFONATE
     Dates: start: 20210701, end: 20210704
  213. POTASSIUM PHOSPHATE, DIBASIC [Concomitant]
     Active Substance: POTASSIUM PHOSPHATE, DIBASIC
     Dates: start: 20210611, end: 20210611
  214. POTASSIUM PHOSPHATE, DIBASIC [Concomitant]
     Active Substance: POTASSIUM PHOSPHATE, DIBASIC
     Route: 065
     Dates: start: 20210611, end: 20210611
  215. POTASSIUM PHOSPHATE, DIBASIC [Concomitant]
     Active Substance: POTASSIUM PHOSPHATE, DIBASIC
     Route: 065
     Dates: start: 20210611, end: 20210611
  216. POTASSIUM PHOSPHATE, DIBASIC [Concomitant]
     Active Substance: POTASSIUM PHOSPHATE, DIBASIC
     Dates: start: 20210611, end: 20210611
  217. FIBRINOGEN HUMAN [Concomitant]
     Active Substance: FIBRINOGEN HUMAN
     Dates: start: 20210707, end: 20210707
  218. FIBRINOGEN HUMAN [Concomitant]
     Active Substance: FIBRINOGEN HUMAN
     Route: 065
     Dates: start: 20210707, end: 20210707
  219. FIBRINOGEN HUMAN [Concomitant]
     Active Substance: FIBRINOGEN HUMAN
     Route: 065
     Dates: start: 20210707, end: 20210707
  220. FIBRINOGEN HUMAN [Concomitant]
     Active Substance: FIBRINOGEN HUMAN
     Dates: start: 20210707, end: 20210707
  221. Mablet [Concomitant]
     Dates: start: 20210610, end: 20210704
  222. Mablet [Concomitant]
     Route: 065
     Dates: start: 20210610, end: 20210704
  223. Mablet [Concomitant]
     Route: 065
     Dates: start: 20210610, end: 20210704
  224. Mablet [Concomitant]
     Dates: start: 20210610, end: 20210704
  225. CASPOFUNGIN [Concomitant]
     Active Substance: CASPOFUNGIN
     Dates: start: 20210705, end: 20210710
  226. CASPOFUNGIN [Concomitant]
     Active Substance: CASPOFUNGIN
     Route: 065
     Dates: start: 20210705, end: 20210710
  227. CASPOFUNGIN [Concomitant]
     Active Substance: CASPOFUNGIN
     Route: 065
     Dates: start: 20210705, end: 20210710
  228. CASPOFUNGIN [Concomitant]
     Active Substance: CASPOFUNGIN
     Dates: start: 20210705, end: 20210710
  229. MEROPENEM [Concomitant]
     Active Substance: MEROPENEM
     Dates: start: 20210705, end: 20210710
  230. MEROPENEM [Concomitant]
     Active Substance: MEROPENEM
     Route: 065
     Dates: start: 20210705, end: 20210710
  231. MEROPENEM [Concomitant]
     Active Substance: MEROPENEM
     Route: 065
     Dates: start: 20210705, end: 20210710
  232. MEROPENEM [Concomitant]
     Active Substance: MEROPENEM
     Dates: start: 20210705, end: 20210710
  233. POTASSIUM CHLORIDE [Concomitant]
     Active Substance: POTASSIUM CHLORIDE
     Dates: start: 20210609, end: 20210613
  234. POTASSIUM CHLORIDE [Concomitant]
     Active Substance: POTASSIUM CHLORIDE
     Dates: start: 20210609, end: 20210613
  235. POTASSIUM CHLORIDE [Concomitant]
     Active Substance: POTASSIUM CHLORIDE
     Route: 065
     Dates: start: 20210609, end: 20210613
  236. POTASSIUM CHLORIDE [Concomitant]
     Active Substance: POTASSIUM CHLORIDE
     Route: 065
     Dates: start: 20210609, end: 20210613
  237. POTASSIUM CHLORIDE [Concomitant]
     Active Substance: POTASSIUM CHLORIDE
     Dates: start: 20210608, end: 20210708
  238. POTASSIUM CHLORIDE [Concomitant]
     Active Substance: POTASSIUM CHLORIDE
     Dates: start: 20210608, end: 20210708
  239. POTASSIUM CHLORIDE [Concomitant]
     Active Substance: POTASSIUM CHLORIDE
     Route: 065
     Dates: start: 20210608, end: 20210708
  240. POTASSIUM CHLORIDE [Concomitant]
     Active Substance: POTASSIUM CHLORIDE
     Route: 065
     Dates: start: 20210608, end: 20210708
  241. LACTULOSE [Concomitant]
     Active Substance: LACTULOSE
     Dates: start: 20210704, end: 20210710
  242. LACTULOSE [Concomitant]
     Active Substance: LACTULOSE
     Route: 065
     Dates: start: 20210704, end: 20210710
  243. LACTULOSE [Concomitant]
     Active Substance: LACTULOSE
     Route: 065
     Dates: start: 20210704, end: 20210710
  244. LACTULOSE [Concomitant]
     Active Substance: LACTULOSE
     Dates: start: 20210704, end: 20210710
  245. INSULIN NOS [Concomitant]
     Active Substance: INSULIN NOS
     Dates: start: 20210701, end: 20210711
  246. INSULIN NOS [Concomitant]
     Active Substance: INSULIN NOS
     Route: 065
     Dates: start: 20210701, end: 20210711
  247. INSULIN NOS [Concomitant]
     Active Substance: INSULIN NOS
     Route: 065
     Dates: start: 20210701, end: 20210711
  248. INSULIN NOS [Concomitant]
     Active Substance: INSULIN NOS
     Dates: start: 20210701, end: 20210711
  249. FOSCARNET [Concomitant]
     Active Substance: FOSCARNET
  250. FOSCARNET [Concomitant]
     Active Substance: FOSCARNET
     Route: 065
  251. FOSCARNET [Concomitant]
     Active Substance: FOSCARNET
     Route: 065
  252. FOSCARNET [Concomitant]
     Active Substance: FOSCARNET
  253. GANCICLOVIR [Concomitant]
     Active Substance: GANCICLOVIR
  254. GANCICLOVIR [Concomitant]
     Active Substance: GANCICLOVIR
     Route: 065
  255. GANCICLOVIR [Concomitant]
     Active Substance: GANCICLOVIR
     Route: 065
  256. GANCICLOVIR [Concomitant]
     Active Substance: GANCICLOVIR
  257. Alminox [Concomitant]
     Dates: start: 20210703, end: 20210711
  258. Alminox [Concomitant]
     Route: 065
     Dates: start: 20210703, end: 20210711
  259. Alminox [Concomitant]
     Route: 065
     Dates: start: 20210703, end: 20210711
  260. Alminox [Concomitant]
     Dates: start: 20210703, end: 20210711

REACTIONS (8)
  - Multiple organ dysfunction syndrome [Fatal]
  - Myelodysplastic syndrome [Not Recovered/Not Resolved]
  - Ascites [Not Recovered/Not Resolved]
  - Cytokine release syndrome [Recovered/Resolved]
  - Pleural effusion [Not Recovered/Not Resolved]
  - Capillary leak syndrome [Not Recovered/Not Resolved]
  - Hepatitis acute [Not Recovered/Not Resolved]
  - Off label use [Unknown]

NARRATIVE: CASE EVENT DATE: 20210606
